FAERS Safety Report 22931209 (Version 5)
Quarter: 2023Q4

REPORT INFORMATION
  Report Type: Spontaneous
  Country: IN (occurrence: IN)
  Receive Date: 20230911
  Receipt Date: 20231228
  Transmission Date: 20240109
  Serious: Yes (Other)
  Sender: FDA-Public Use
  Company Number: IN-PFIZER INC-PV202300141619

PATIENT
  Age: 70 Year
  Sex: Male

DRUGS (5)
  1. LORLATINIB [Suspect]
     Active Substance: LORLATINIB
     Dosage: 75 MG, 1X/DAY
     Route: 048
     Dates: start: 20230813
  2. CERITINIB [Concomitant]
     Active Substance: CERITINIB
     Dosage: UNK
     Dates: start: 202206
  3. DENOSUMAB [Concomitant]
     Active Substance: DENOSUMAB
     Dosage: UNK
     Dates: start: 202210
  4. CALCIUM CARBONATE\CHOLECALCIFEROL [Concomitant]
     Active Substance: CALCIUM CARBONATE\CHOLECALCIFEROL
     Dosage: 500 MG 1-0-0
  5. D RISE [Concomitant]
     Dosage: 60000 IU, MONTHLY

REACTIONS (18)
  - Hallucination, visual [Recovering/Resolving]
  - Lower respiratory tract infection [Unknown]
  - Blood thyroid stimulating hormone increased [Unknown]
  - Hypoaesthesia [Unknown]
  - Somnolence [Recovering/Resolving]
  - Laboratory test abnormal [Unknown]
  - Haemoglobin decreased [Unknown]
  - Abdominal distension [Unknown]
  - Protein urine present [Unknown]
  - Oxygen saturation decreased [Unknown]
  - Glucose urine present [Unknown]
  - Pyrexia [Unknown]
  - Ischaemia [Unknown]
  - Respiratory disorder [Unknown]
  - Cough [Unknown]
  - Wheezing [Unknown]
  - Weight increased [Unknown]
  - Thyroid disorder [Unknown]

NARRATIVE: CASE EVENT DATE: 20231018
